FAERS Safety Report 20949908 (Version 1)
Quarter: 2022Q2

REPORT INFORMATION
  Report Type: Spontaneous
  Country: GR (occurrence: None)
  Receive Date: 20220613
  Receipt Date: 20220613
  Transmission Date: 20220721
  Serious: Yes (Hospitalization)
  Sender: FDA-Public Use
  Company Number: None

PATIENT
  Age: 76 Year
  Sex: Female

DRUGS (5)
  1. TOCILIZUMAB [Suspect]
     Active Substance: TOCILIZUMAB
     Indication: COVID-19
     Dosage: 720 MG IN A SINGLE DOSE
     Route: 042
     Dates: start: 20211225, end: 20211225
  2. PEPTAN [Concomitant]
     Indication: COVID-19
     Route: 042
     Dates: start: 20211220
  3. VEKLURY [Concomitant]
     Active Substance: REMDESIVIR
     Indication: COVID-19
     Route: 042
     Dates: start: 20211220, end: 20211224
  4. AVELOX [Concomitant]
     Active Substance: MOXIFLOXACIN HYDROCHLORIDE
     Indication: COVID-19
     Route: 042
     Dates: start: 20211221
  5. INNOHEP [Concomitant]
     Active Substance: TINZAPARIN SODIUM
     Indication: COVID-19
     Dosage: 0.45 ONCE DAILY
     Route: 042
     Dates: start: 20211220

REACTIONS (3)
  - Neutropenia [Unknown]
  - Leukopenia [Recovering/Resolving]
  - Thrombocytopenia [Unknown]

NARRATIVE: CASE EVENT DATE: 20220101
